FAERS Safety Report 6497183-9 (Version None)
Quarter: 2009Q4

REPORT INFORMATION
  Report Type: 
  Country: None (occurrence: None)
  Receive Date: 20091215
  Receipt Date: 20090522
  Transmission Date: 20100525
  Serious: No
  Sender: FDA-Public Use
  Company Number: A0785879A

PATIENT
  Age: 53 Year
  Sex: Male

DRUGS (5)
  1. AVODART [Suspect]
     Indication: BENIGN PROSTATIC HYPERPLASIA
     Dosage: 1CAP SINGLE DOSE
     Route: 048
     Dates: start: 20090521
  2. XALATAN [Concomitant]
  3. PROPINE [Concomitant]
  4. COSOPT [Concomitant]
  5. EYE DROPS [Concomitant]
     Indication: GLAUCOMA

REACTIONS (2)
  - HEADACHE [None]
  - LIP SWELLING [None]
